FAERS Safety Report 6033388-9 (Version None)
Quarter: 2009Q1

REPORT INFORMATION
  Report Type: 
  Country: None (occurrence: None)
  Receive Date: 20090106
  Receipt Date: 20080318
  Transmission Date: 20090719
  Serious: Yes (Hospitalization)
  Sender: FDA-Public Use
  Company Number: DSA_31629_2008

PATIENT
  Age: 79 Year
  Sex: Female

DRUGS (3)
  1. CARDIZEM [Suspect]
     Indication: DRUG USE FOR UNKNOWN INDICATION
     Dosage: DF
  2. AMBRISENTAN [Suspect]
     Indication: PULMONARY ARTERIAL HYPERTENSION
     Dosage: DF
  3. AMBRISENTAN [Suspect]
     Indication: SCLERODERMA
     Dosage: DF

REACTIONS (1)
  - CARDIAC FAILURE CONGESTIVE [None]
